FAERS Safety Report 15304772 (Version 3)
Quarter: 2019Q1

REPORT INFORMATION
  Report Type: Report from Study
  Country: None (occurrence: AR)
  Receive Date: 20180821
  Receipt Date: 20190208
  Transmission Date: 20190417
  Serious: Yes (Hospitalization, Other)
  Sender: FDA-Public Use
  Company Number: AR-ABBVIE-18K-007-2457064-00

PATIENT
  Age: 71 Year
  Sex: Female

DRUGS (1)
  1. HUMIRA [Suspect]
     Active Substance: ADALIMUMAB
     Indication: PSORIATIC ARTHROPATHY
     Route: 058
     Dates: start: 20180108, end: 2018

REACTIONS (7)
  - Psoriatic arthropathy [Not Recovered/Not Resolved]
  - Ovarian cyst [Unknown]
  - Lymphadenopathy mediastinal [Unknown]
  - Drug hypersensitivity [Unknown]
  - Dermatitis allergic [Unknown]
  - Lymph node tuberculosis [Not Recovered/Not Resolved]
  - Post procedural discharge [Not Recovered/Not Resolved]

NARRATIVE: CASE EVENT DATE: 2018
